FAERS Safety Report 9154249 (Version 1)
Quarter: 2013Q1

REPORT INFORMATION
  Report Type: Spontaneous
  Country: GB (occurrence: GB)
  Receive Date: 20130311
  Receipt Date: 20130311
  Transmission Date: 20140127
  Serious: Yes (Life-Threatening, Disabling, Other)
  Sender: FDA-Public Use
  Company Number: GB-ASTRAZENECA-2013SE14984

PATIENT
  Age: 61 Year
  Sex: Male

DRUGS (3)
  1. CRESTOR [Suspect]
     Indication: HYPERLIPIDAEMIA
     Route: 048
     Dates: start: 20121130, end: 20121204
  2. GLICLAZIDE [Concomitant]
     Indication: DIABETES MELLITUS
     Route: 048
  3. METFORMIN [Concomitant]
     Indication: DIABETES MELLITUS
     Route: 048

REACTIONS (2)
  - Glomerulonephritis minimal lesion [Recovering/Resolving]
  - Nephrotic syndrome [Recovering/Resolving]
